FAERS Safety Report 7693347-7 (Version None)
Quarter: 2011Q3

REPORT INFORMATION
  Report Type: 
  Country: None (occurrence: None)
  Receive Date: 20110819
  Receipt Date: 20110810
  Transmission Date: 20111222
  Serious: Yes (Hospitalization)
  Sender: FDA-Public Use
  Company Number: DE-ABBOTT-11P-062-0718023-00

PATIENT
  Age: 23 Year
  Sex: Female

DRUGS (6)
  1. LEVOTHYROXINE SODIUM [Concomitant]
     Indication: HYPOTHYROIDISM
     Route: 048
     Dates: start: 20050101
  2. CHEMOTHERAPY [Concomitant]
     Indication: BREAST CANCER
  3. LEUPROLIDE ACETATE [Suspect]
     Indication: OVARIAN DISORDER
  4. LEUPROLIDE ACETATE [Suspect]
     Indication: PROPHYLAXIS
     Route: 058
     Dates: start: 20101125, end: 20110217
  5. DEXAM [Concomitant]
     Indication: PRODUCT USED FOR UNKNOWN INDICATION
     Route: 048
     Dates: start: 20110311, end: 20110315
  6. ALLOPURINOL [Concomitant]
     Indication: PRODUCT USED FOR UNKNOWN INDICATION
     Dates: start: 20110311, end: 20110315

REACTIONS (2)
  - PANCYTOPENIA [None]
  - PNEUMONITIS [None]
